FAERS Safety Report 7227601-X (Version None)
Quarter: 2011Q1

REPORT INFORMATION
  Report Type: 
  Country: None (occurrence: None)
  Receive Date: 20110114
  Receipt Date: 20110105
  Transmission Date: 20110831
  Serious: Yes (Other)
  Sender: FDA-Public Use
  Company Number: US-US-EMD SERONO, INC.-232306J09USA

PATIENT
  Sex: Female
  Weight: 73 kg

DRUGS (4)
  1. VITAMIN D [Concomitant]
  2. REBIF [Suspect]
     Indication: RELAPSING-REMITTING MULTIPLE SCLEROSIS
     Route: 058
     Dates: start: 20030818
  3. XANAX [Concomitant]
  4. DILANTIN [Concomitant]

REACTIONS (7)
  - UTERINE POLYP [None]
  - UTERINE LEIOMYOMA [None]
  - HEMIPARESIS [None]
  - COLD SWEAT [None]
  - INFLUENZA LIKE ILLNESS [None]
  - HYPOAESTHESIA [None]
  - DRUG HYPERSENSITIVITY [None]
